FAERS Safety Report 8151521-X (Version None)
Quarter: 2012Q1

REPORT INFORMATION
  Report Type: 
  Country: None (occurrence: None)
  Receive Date: 20120220
  Receipt Date: 20120215
  Transmission Date: 20120608
  Serious: Yes (Death, Hospitalization)
  Sender: FDA-Public Use
  Company Number: US-ROCHE-1040687

PATIENT
  Sex: Male
  Weight: 99.4 kg

DRUGS (3)
  1. CYCLOSPORINE [Suspect]
     Indication: CHRONIC LYMPHOCYTIC LEUKAEMIA
     Dosage: LAST DOSE PRIOR TO SAE: 02/NOV/2010
     Route: 042
     Dates: start: 20101102
  2. PENTOSTATIN [Suspect]
     Indication: CHRONIC LYMPHOCYTIC LEUKAEMIA
     Dosage: LAST DOSE PRIOR TO SAE: 02/NOV/2010
     Route: 042
     Dates: start: 20101102
  3. MABTHERA [Suspect]
     Indication: CHRONIC LYMPHOCYTIC LEUKAEMIA
     Dosage: LAST DOSE PRIOR TO SAE: 03/NOV/2010
     Route: 042
     Dates: start: 20101102

REACTIONS (3)
  - RENAL FAILURE [None]
  - CONFUSIONAL STATE [None]
  - NEUROLOGICAL DECOMPENSATION [None]
